FAERS Safety Report 10087934 (Version 1)
Quarter: 2014Q2

REPORT INFORMATION
  Report Type: Spontaneous
  Country: PL (occurrence: PL)
  Receive Date: 20140419
  Receipt Date: 20140419
  Transmission Date: 20141212
  Serious: Yes (Other)
  Sender: FDA-Public Use
  Company Number: PL-ROCHE-1380041

PATIENT
  Sex: 0

DRUGS (1)
  1. VALCYTE [Suspect]
     Indication: ANTIVIRAL PROPHYLAXIS
     Route: 065

REACTIONS (1)
  - Cytomegalovirus infection [Unknown]
